FAERS Safety Report 4760099-X (Version None)
Quarter: 2005Q3

REPORT INFORMATION
  Report Type: 
  Country: None (occurrence: None)
  Receive Date: 20050902
  Receipt Date: 20050414
  Transmission Date: 20060218
  Serious: No
  Sender: FDA-Public Use
  Company Number: US-GLAXOSMITHKLINE-A0554222A

PATIENT
  Age: 52 Year
  Sex: Female

DRUGS (3)
  1. REQUIP [Suspect]
     Indication: PARKINSON'S DISEASE
     Dosage: .5MG THREE TIMES PER DAY
     Route: 048
     Dates: start: 20050328
  2. VICODIN ES [Concomitant]
  3. ATIVAN [Concomitant]

REACTIONS (6)
  - BALANCE DISORDER [None]
  - DIZZINESS [None]
  - HEADACHE [None]
  - MUSCLE SPASMS [None]
  - MUSCLE TWITCHING [None]
  - SOMNOLENCE [None]
